FAERS Safety Report 18031060 (Version 1)
Quarter: 2020Q3

REPORT INFORMATION
  Report Type: Spontaneous
  Country: CA (occurrence: CA)
  Receive Date: 20200715
  Receipt Date: 20200715
  Transmission Date: 20201103
  Serious: Yes (Other)
  Sender: FDA-Public Use
  Company Number: CA-ROCHE-2632471

PATIENT
  Age: 32 Year
  Sex: Female

DRUGS (1)
  1. OCREVUS [Suspect]
     Active Substance: OCRELIZUMAB
     Indication: RELAPSING-REMITTING MULTIPLE SCLEROSIS
     Route: 042
     Dates: start: 20200625

REACTIONS (3)
  - Muscle spasms [Recovered/Resolved]
  - Infusion related reaction [Recovered/Resolved]
  - Optic neuritis [Recovered/Resolved]

NARRATIVE: CASE EVENT DATE: 20200625
